FAERS Safety Report 24862663 (Version 1)
Quarter: 2025Q1

REPORT INFORMATION
  Report Type: Spontaneous
  Country: US (occurrence: US)
  Receive Date: 20250120
  Receipt Date: 20250120
  Transmission Date: 20250409
  Serious: Yes (Other)
  Sender: COOPERSURGICAL
  Company Number: US-COOPERSURGICAL, INC.-2025CPS000086

PATIENT
  Age: 26 Year
  Sex: Female
  Weight: 58.957 kg

DRUGS (1)
  1. PARAGARD T 380A [Suspect]
     Active Substance: COPPER
     Indication: Contraception
     Route: 015
     Dates: start: 20090101

REACTIONS (18)
  - Reproductive complication associated with device [Unknown]
  - Ovarian cyst [Unknown]
  - Abortion spontaneous [Recovered/Resolved]
  - Device breakage [Not Recovered/Not Resolved]
  - Foreign body in reproductive tract [Not Recovered/Not Resolved]
  - Complication of device removal [Not Recovered/Not Resolved]
  - Off label use [Unknown]
  - Uterine scar [Not Recovered/Not Resolved]
  - Post-traumatic stress disorder [Unknown]
  - Emotional distress [Not Recovered/Not Resolved]
  - Fatigue [Unknown]
  - Depression [Unknown]
  - Anxiety [Unknown]
  - Attention deficit hyperactivity disorder [Unknown]
  - Bacterial vaginosis [Not Recovered/Not Resolved]
  - Pain [Not Recovered/Not Resolved]
  - Infection [Unknown]
  - Abnormal uterine bleeding [Unknown]

NARRATIVE: CASE EVENT DATE: 20090101
